FAERS Safety Report 5738911-7 (Version None)
Quarter: 2008Q2

REPORT INFORMATION
  Report Type: 
  Country: None (occurrence: None)
  Receive Date: 20080515
  Receipt Date: 20080505
  Transmission Date: 20081010
  Serious: Yes (Other)
  Sender: FDA-Public Use
  Company Number: US-ROCHE-562582

PATIENT
  Sex: Male

DRUGS (2)
  1. PEG-INTERFERON A-2A (RO 25-8310) [Suspect]
     Indication: DRUG USE FOR UNKNOWN INDICATION
     Route: 065
     Dates: start: 20080410
  2. RIBAVIRIN [Suspect]
     Indication: DRUG USE FOR UNKNOWN INDICATION
     Route: 065
     Dates: start: 20080410

REACTIONS (9)
  - CHILLS [None]
  - COLD SWEAT [None]
  - DELUSION [None]
  - DIZZINESS [None]
  - INJECTION SITE BRUISING [None]
  - INSOMNIA [None]
  - PYREXIA [None]
  - SKIN NODULE [None]
  - VOMITING [None]
